FAERS Safety Report 18679102 (Version 1)
Quarter: 2020Q4

REPORT INFORMATION
  Report Type: Spontaneous
  Country: NL (occurrence: FR)
  Receive Date: 20201229
  Receipt Date: 20201229
  Transmission Date: 20210114
  Serious: Yes (Hospitalization)
  Sender: FDA-Public Use
  Company Number: FR-FRESENIUS KABI-FK202013842

PATIENT
  Age: 62 Year
  Sex: Male
  Weight: 62 kg

DRUGS (7)
  1. HYPROMELLOSE [Suspect]
     Active Substance: HYPROMELLOSES
     Indication: CHORIORETINITIS
     Route: 047
     Dates: start: 20201027, end: 20201205
  2. IMIPENEM [Suspect]
     Active Substance: IMIPENEM
     Indication: ENDOPHTHALMITIS
     Route: 041
     Dates: start: 20201027, end: 20201104
  3. MEROPENEM (MANUFACTURER UNKNOWN) [Suspect]
     Active Substance: MEROPENEM
     Indication: CHORIORETINITIS
     Route: 041
     Dates: start: 20201104, end: 20201205
  4. LEVOFLOXACIN (MANUFACTURER UNKNOWN) [Suspect]
     Active Substance: LEVOFLOXACIN
     Indication: CHORIORETINITIS
     Dosage: 250 MG/DAY
     Route: 041
     Dates: start: 20201027, end: 20201205
  5. CILASTATIN [Suspect]
     Active Substance: CILASTATIN
     Indication: ENDOPHTHALMITIS
     Route: 041
     Dates: start: 20201027, end: 20201104
  6. ATROPINE. [Suspect]
     Active Substance: ATROPINE
     Indication: CHORIORETINITIS
     Route: 047
  7. NEOMYCIN SULFATE/DEXAMETHASONE SODIUM PHOSPHATE [Suspect]
     Active Substance: DEXAMETHASONE SODIUM PHOSPHATE\NEOMYCIN SULFATE
     Indication: CHORIORETINITIS
     Route: 047
     Dates: start: 20201027, end: 20201205

REACTIONS (1)
  - Toxic epidermal necrolysis [Not Recovered/Not Resolved]

NARRATIVE: CASE EVENT DATE: 20201127
